FAERS Safety Report 7988622-2 (Version None)
Quarter: 2011Q4

REPORT INFORMATION
  Report Type: 
  Country: None (occurrence: None)
  Receive Date: 20111218
  Receipt Date: 20051115
  Transmission Date: 20120403
  Serious: Yes (Other)
  Sender: FDA-Public Use
  Company Number: PHHY2005CL007069

PATIENT
  Age: 72 Year
  Sex: Male

DRUGS (1)
  1. TEGRETOL [Suspect]

REACTIONS (1)
  - CEREBROVASCULAR ACCIDENT [None]
